FAERS Safety Report 15707964 (Version 1)
Quarter: 2018Q4

REPORT INFORMATION
  Report Type: Other
  Country: IT (occurrence: IT)
  Receive Date: 20181211
  Receipt Date: 20181211
  Transmission Date: 20190205
  Serious: Yes (Death)
  Sender: FDA-Public Use
  Company Number: IT-CELLTRION INC.-2018IT024521

PATIENT

DRUGS (2)
  1. RITUXIMAB (UNKNOWN) [Suspect]
     Active Substance: RITUXIMAB
     Indication: NEPHROTIC SYNDROME
     Dosage: 1000 MG
     Route: 042
     Dates: start: 20180724, end: 20180724
  2. MAVIRET [Concomitant]
     Active Substance: GLECAPREVIR\PIBRENTASVIR
     Indication: HEPATITIS
     Dosage: 100 MG, CUMULATIVE DOSE TO FIRST REACTION: 6900 MG
     Dates: start: 20180706, end: 20180912

REACTIONS (5)
  - Hepatic failure [Fatal]
  - Off label use [Unknown]
  - Productive cough [Fatal]
  - Dyspnoea [Fatal]
  - Ascites [Fatal]

NARRATIVE: CASE EVENT DATE: 20180912
